FAERS Safety Report 4455465-6 (Version None)
Quarter: 2004Q3

REPORT INFORMATION
  Report Type: 
  Country: None (occurrence: None)
  Receive Date: 20040917
  Receipt Date: 20040901
  Transmission Date: 20050211
  Serious: Yes (Life-Threatening, Other)
  Sender: FDA-Public Use
  Company Number: EWC040940482

PATIENT
  Age: 66 Year
  Sex: Female

DRUGS (9)
  1. HUMALOG [Suspect]
     Indication: DIABETES MELLITUS NON-INSULIN-DEPENDENT
     Dosage: 36 IU/1 DAY
     Dates: start: 20021201
  2. ETODOLAC [Concomitant]
  3. TOREM (TORASEMIDE SODIUM) [Concomitant]
  4. ZYLORIC (ALOPURINOL) [Concomitant]
  5. PRAVASTATIN SODIUM [Concomitant]
  6. ASPIRIN [Concomitant]
  7. COSAAR (LOSARTAN POTASSIUM) [Concomitant]
  8. VALSARTAN [Concomitant]
  9. METOPROLOL SUCCINATE [Concomitant]

REACTIONS (1)
  - THROMBOCYTOPENIA [None]
